FAERS Safety Report 10994312 (Version 2)
Quarter: 2015Q2

REPORT INFORMATION
  Report Type: Spontaneous
  Country: US (occurrence: US)
  Receive Date: 20150407
  Receipt Date: 20150506
  Transmission Date: 20150821
  Serious: No
  Sender: FDA-Public Use
  Company Number: US-PFIZER INC-2015117211

PATIENT
  Age: 70 Year
  Sex: Male
  Weight: 104 kg

DRUGS (16)
  1. PHILLIPS COLON HEALTH PROBIOTICS [Concomitant]
     Dosage: 1 DF, 1X/DAY
     Route: 048
  2. LYRICA [Suspect]
     Active Substance: PREGABALIN
     Indication: NERVE COMPRESSION
     Dosage: 300 MG, 2X/DAY
     Route: 048
  3. LYRICA [Suspect]
     Active Substance: PREGABALIN
     Indication: NEURALGIA
  4. NUCYNTA [Concomitant]
     Active Substance: TAPENTADOL HYDROCHLORIDE
     Indication: NERVE INJURY
     Dosage: 100 MG, 5 TIMES A DAY
     Route: 048
  5. METHOCARBAMOL. [Concomitant]
     Active Substance: METHOCARBAMOL
     Indication: MUSCLE RELAXANT THERAPY
     Dosage: 750 MG, 3X/DAY AS NEEDED
     Route: 048
  6. METHYLFOLATE [Concomitant]
     Dosage: 1 DF, 2X/DAY
  7. AMLODIPINE/BENAZEPRIL [Concomitant]
     Dosage: 10/40 MG, 1X/DAY
     Route: 048
  8. SIMVASTATIN. [Concomitant]
     Active Substance: SIMVASTATIN
     Dosage: 20 MG, 1X/DAY
     Route: 048
  9. OCUVITE [Concomitant]
     Active Substance: VITAMINS
     Indication: MACULAR DEGENERATION
     Dosage: 1 DF, DAILY
     Route: 048
  10. FLUTICASONE [Concomitant]
     Active Substance: FLUTICASONE\FLUTICASONE PROPIONATE
     Dosage: 50 MCG, DAILY-AT BEDTIME
     Route: 045
  11. TESTOSTERONE CIPIONATE [Concomitant]
     Active Substance: TESTOSTERONE
     Indication: BLOOD TESTOSTERONE DECREASED
     Dosage: 200MG/ ML 10 ML/ 0.5 MLS INJECTION BY MOUTH EVERY 2 WEEKS
  12. TRAZODONE [Concomitant]
     Active Substance: TRAZODONE HYDROCHLORIDE
     Indication: INSOMNIA
     Dosage: 50 MG, 1X/DAY-AT NIGHT
  13. DULOXETINE ER [Concomitant]
     Dosage: 30 MG, 2X/DAY
     Route: 048
  14. EQUATE STOOL SOFTENER [Concomitant]
     Active Substance: CASANTHRANOL\DOCUSATE SODIUM
     Dosage: 250 MG, 1X/DAY
     Route: 048
  15. ONE-A-DAY MENS 50 PLUS [Concomitant]
     Dosage: 1 DF, DAILY
  16. OXYCODONE/PARACETAMOL [Concomitant]
     Dosage: 10 MG/325 MG, 4X/DAY
     Route: 048

REACTIONS (1)
  - Dry mouth [Not Recovered/Not Resolved]
